FAERS Safety Report 4378621-4 (Version None)
Quarter: 2004Q2

REPORT INFORMATION
  Report Type: 
  Country: None (occurrence: None)
  Receive Date: 20040610
  Receipt Date: 20040601
  Transmission Date: 20050107
  Serious: Yes (Hospitalization, Other)
  Sender: FDA-Public Use
  Company Number: 2004-06-0141

PATIENT
  Age: 29 Year
  Sex: Female

DRUGS (3)
  1. BECLOMETHASONE DIPROPIONATE [Suspect]
  2. SALBUTAMOL (ALBUTEROL) ORAL AEROSOL [Suspect]
     Indication: ASTHMA
     Dosage: ORAL AER INH
     Route: 055
  3. OMEPRAZOLE [Suspect]
     Dosage: 20 MG DAY ORAL
     Route: 048

REACTIONS (3)
  - BILIARY DILATATION [None]
  - CHOLEDOCHAL CYST [None]
  - GASTROENTERITIS EOSINOPHILIC [None]
